FAERS Safety Report 5959863-0 (Version None)
Quarter: 2008Q4

REPORT INFORMATION
  Report Type: 
  Country: None (occurrence: None)
  Receive Date: 20081119
  Receipt Date: 20081119
  Transmission Date: 20090506
  Serious: Yes (Hospitalization)
  Sender: FDA-Public Use
  Company Number: None

PATIENT
  Sex: Male

DRUGS (4)
  1. CLOFARABINE [Suspect]
     Indication: MYELODYSPLASTIC SYNDROME
     Dosage: 60MG
     Dates: start: 20080918, end: 20080922
  2. FLUDARABINE PHOSPHATE [Concomitant]
  3. BUSFULFAN [Concomitant]
  4. CAMPATH [Concomitant]

REACTIONS (4)
  - CATATONIA [None]
  - CONFUSIONAL STATE [None]
  - PSYCHOTIC DISORDER [None]
  - THINKING ABNORMAL [None]
